FAERS Safety Report 4454781-1 (Version None)
Quarter: 2004Q3

REPORT INFORMATION
  Report Type: 
  Country: None (occurrence: None)
  Receive Date: 20040921
  Receipt Date: 20040915
  Transmission Date: 20050211
  Serious: Yes (Hospitalization)
  Sender: FDA-Public Use
  Company Number: JP-MERCK-0409USA01394

PATIENT
  Age: 88 Year
  Sex: Male

DRUGS (2)
  1. FOSAMAX [Suspect]
     Route: 048
     Dates: start: 20040224, end: 20040824
  2. VOLTAREN [Concomitant]
     Route: 065
     Dates: start: 20040224, end: 20040824

REACTIONS (1)
  - SMALL INTESTINAL HAEMORRHAGE [None]
